FAERS Safety Report 25364235 (Version 2)
Quarter: 2025Q2

REPORT INFORMATION
  Report Type: Spontaneous
  Country: DE (occurrence: DE)
  Receive Date: 20250527
  Receipt Date: 20250624
  Transmission Date: 20250716
  Serious: Yes (Other)
  Sender: ALCON
  Company Number: DE-Santen Oy-2025-DEU-005438

PATIENT

DRUGS (1)
  1. LATANOPROST\NETARSUDIL MESYLATE [Suspect]
     Active Substance: LATANOPROST\NETARSUDIL MESYLATE
     Indication: Glaucoma
     Route: 047

REACTIONS (2)
  - Corneal opacity [Not Recovered/Not Resolved]
  - Vision blurred [Not Recovered/Not Resolved]
